FAERS Safety Report 7135665-7 (Version None)
Quarter: 2010Q4

REPORT INFORMATION
  Report Type: 
  Country: None (occurrence: None)
  Receive Date: 20101203
  Receipt Date: 20101027
  Transmission Date: 20110411
  Serious: Yes (Hospitalization)
  Sender: FDA-Public Use
  Company Number: AU-ROCHE-745603

PATIENT
  Sex: Female

DRUGS (2)
  1. ACTEMRA [Suspect]
     Dosage: INFUSION
     Route: 065
     Dates: end: 20101027
  2. ACTEMRA [Suspect]
     Dosage: RE-STARTED ON 22 NOV 2010
     Route: 065

REACTIONS (1)
  - BLOOD CALCIUM INCREASED [None]
